FAERS Safety Report 18979733 (Version 2)
Quarter: 2021Q1

REPORT INFORMATION
  Report Type: Report from Study
  Country: US (occurrence: US)
  Receive Date: 20210308
  Receipt Date: 20210312
  Transmission Date: 20210420
  Serious: No
  Sender: FDA-Public Use
  Company Number: US-SA-2021SA072194

PATIENT
  Age: 73 Year
  Sex: Female

DRUGS (33)
  1. DOVONEX [Concomitant]
     Active Substance: CALCIPOTRIENE
  2. HYDROCHLOROTHIAZIDE. [Concomitant]
     Active Substance: HYDROCHLOROTHIAZIDE
  3. EUCRISA [Concomitant]
     Active Substance: CRISABOROLE
  4. CALCIUM [Concomitant]
     Active Substance: CALCIUM
     Dosage: UNK [500 (1250)]
  5. BETAMETHASONE. [Concomitant]
     Active Substance: BETAMETHASONE
  6. DUPIXENT [Suspect]
     Active Substance: DUPILUMAB
     Dosage: 300 MG, QOW
     Route: 058
     Dates: start: 202102
  7. TERAZOSIN HCL [Concomitant]
     Active Substance: TERAZOSIN HYDROCHLORIDE
  8. ALLEGRA D?12 HOUR [Concomitant]
     Active Substance: FEXOFENADINE HYDROCHLORIDE\PSEUDOEPHEDRINE HYDROCHLORIDE
  9. METHENAMINE HIPPURATE. [Concomitant]
     Active Substance: METHENAMINE HIPPURATE
  10. ZOLPIDEM TARTRATE. [Concomitant]
     Active Substance: ZOLPIDEM TARTRATE
  11. DULCOLAX (BISACODYL) [Concomitant]
     Active Substance: BISACODYL
  12. DUPIXENT [Suspect]
     Active Substance: DUPILUMAB
     Indication: DERMATITIS ATOPIC
     Dosage: 600 MG, 1X
     Route: 058
     Dates: start: 20210127, end: 20210127
  13. B12 ACTIVE [Concomitant]
  14. ESTRADIOL. [Concomitant]
     Active Substance: ESTRADIOL
     Dosage: UNK UNK, QW
  15. EUCRISA [Concomitant]
     Active Substance: CRISABOROLE
  16. ASPIRIN [ACETYLSALICYLIC ACID] [Concomitant]
     Active Substance: ASPIRIN
  17. VITAMINS NOS [Concomitant]
     Active Substance: VITAMINS
  18. SYMBICORT [Concomitant]
     Active Substance: BUDESONIDE\FORMOTEROL FUMARATE DIHYDRATE
     Dosage: UNK (SYMBICORT 160?4.5 MCG HFA AER AD)
  19. PROAIR HFA [Concomitant]
     Active Substance: ALBUTEROL SULFATE
     Dosage: UNK (90 MCG HFA AER AD)
  20. OMEPRAZOLE. [Concomitant]
     Active Substance: OMEPRAZOLE
  21. NYSTATIN. [Concomitant]
     Active Substance: NYSTATIN
     Dosage: UNK (100000/G)
  22. NYSTATIN. [Concomitant]
     Active Substance: NYSTATIN
  23. CETAPHIL [SOFT SOAP] [Concomitant]
     Dosage: UNK (3?10 %)
  24. CETAPHIL CLEANSERS OILY SKIN [Concomitant]
  25. MELATONIN [Concomitant]
     Active Substance: MELATONIN
  26. ALBUTEROL SULFATE. [Concomitant]
     Active Substance: ALBUTEROL SULFATE
  27. BETAMETHASONE ACETATE [Concomitant]
     Active Substance: BETAMETHASONE ACETATE
     Dosage: UNK (MICRO)
  28. PROBIOTIC 10 [Concomitant]
     Active Substance: DIETARY SUPPLEMENT\PROBIOTICS
  29. CRESTOR [Concomitant]
     Active Substance: ROSUVASTATIN CALCIUM
  30. LAMOTRIGINE. [Concomitant]
     Active Substance: LAMOTRIGINE
  31. SINGULAIR [Concomitant]
     Active Substance: MONTELUKAST SODIUM
  32. MYRBETRIQ [Concomitant]
     Active Substance: MIRABEGRON
     Dosage: UNK (ER, 24 HR)
  33. METOPROLOL TARTRATE. [Concomitant]
     Active Substance: METOPROLOL TARTRATE

REACTIONS (1)
  - Pruritus [Not Recovered/Not Resolved]

NARRATIVE: CASE EVENT DATE: 202102
